FAERS Safety Report 9843532 (Version 1)
Quarter: 2013Q4

REPORT INFORMATION
  Report Type: Spontaneous
  Country: US (occurrence: None)
  Receive Date: 20131219
  Receipt Date: 20131219
  Transmission Date: 20140711
  Serious: Yes (Other)
  Sender: FDA-Public Use
  Company Number: 163-20785-13060777

PATIENT
  Age: 69 Year
  Sex: Female
  Weight: 75.7 kg

DRUGS (1)
  1. THALOMID [Suspect]
     Indication: PLASMA CELL MYELOMA
     Dosage: TEMP. INTERRUPTED
     Route: 048
     Dates: start: 201209

REACTIONS (2)
  - Drug dose omission [None]
  - Malaise [None]
